FAERS Safety Report 5671709-7 (Version None)
Quarter: 2008Q1

REPORT INFORMATION
  Report Type: 
  Country: None (occurrence: None)
  Receive Date: 20080314
  Receipt Date: 20080311
  Transmission Date: 20080703
  Serious: Yes (Life-Threatening, Hospitalization)
  Sender: FDA-Public Use
  Company Number: WAES 0803USA01653

PATIENT
  Age: 49 Year
  Sex: Male
  Weight: 123.832 kg

DRUGS (14)
  1. DECADRON [Suspect]
     Dosage: PO
     Route: 048
  2. TEMODAR [Suspect]
     Indication: MALIGNANT OLIGODENDROGLIOMA
     Dosage: 300 MG/DAILY
     Dates: start: 20080205, end: 20080209
  3. BACTRIM DS [Concomitant]
  4. CLARINEX [Concomitant]
  5. COLACE [Concomitant]
  6. CRESTOR [Concomitant]
  7. KEPPRA [Concomitant]
  8. NIASPAN [Concomitant]
  9. ACETAMINOPHEN AND HYDROCODONE BITARTRATE [Concomitant]
  10. MAGNESIUM OXIDE [Concomitant]
  11. PANTOPRAZOLE SODIUM [Concomitant]
  12. PHENOBARBITAL TAB [Concomitant]
  13. ROPINIROLE HCL [Concomitant]
  14. WARFARIN SODIUM [Concomitant]

REACTIONS (7)
  - CELLULITIS [None]
  - HYPOTENSION [None]
  - MENTAL STATUS CHANGES [None]
  - PYREXIA [None]
  - SEPSIS [None]
  - SKIN LESION [None]
  - TACHYCARDIA [None]
